FAERS Safety Report 17820233 (Version 2)
Quarter: 2020Q2

REPORT INFORMATION
  Report Type: Report from Study
  Country: US (occurrence: US)
  Receive Date: 20200525
  Receipt Date: 20200529
  Transmission Date: 20200714
  Serious: No
  Sender: FDA-Public Use
  Company Number: US-GILEAD-2020-0468143

PATIENT
  Age: 36 Year
  Sex: Male

DRUGS (2)
  1. EMTRICITABINE;TENOFOVIR DISOPROXIL FUMARATE [Suspect]
     Active Substance: EMTRICITABINE\TENOFOVIR DISOPROXIL FUMARATE
     Indication: PROPHYLAXIS AGAINST HIV INFECTION
     Dosage: 2 DOSAGE FORM, QD
     Route: 048
     Dates: start: 20200520, end: 20200520
  2. EMTRICITABINE;TENOFOVIR DISOPROXIL FUMARATE [Suspect]
     Active Substance: EMTRICITABINE\TENOFOVIR DISOPROXIL FUMARATE
     Dosage: 500 MG, QD
     Route: 048
     Dates: start: 2018

REACTIONS (3)
  - Dysgeusia [Unknown]
  - Extra dose administered [Recovered/Resolved]
  - Product dispensing error [Unknown]

NARRATIVE: CASE EVENT DATE: 20200520
